FAERS Safety Report 11481451 (Version 1)
Quarter: 2015Q3

REPORT INFORMATION
  Report Type: Spontaneous
  Country: US (occurrence: US)
  Receive Date: 20150909
  Receipt Date: 20150909
  Transmission Date: 20151125
  Serious: Yes (Other)
  Sender: FDA-Public Use
  Company Number: US-CELGENEUS-USA-2015087113

PATIENT
  Age: 53 Year
  Sex: Male

DRUGS (2)
  1. REVLIMID [Suspect]
     Active Substance: LENALIDOMIDE
     Route: 048
     Dates: start: 20150801
  2. REVLIMID [Suspect]
     Active Substance: LENALIDOMIDE
     Indication: LYMPHOMA
     Route: 048
     Dates: start: 201506

REACTIONS (2)
  - Syncope [Recovered/Resolved]
  - Seizure [Recovered/Resolved]

NARRATIVE: CASE EVENT DATE: 20150826
